FAERS Safety Report 21553330 (Version 2)
Quarter: 2022Q4

REPORT INFORMATION
  Report Type: Spontaneous
  Country: IT (occurrence: IT)
  Receive Date: 20221104
  Receipt Date: 20221122
  Transmission Date: 20230113
  Serious: Yes (Life-Threatening, Hospitalization, Other)
  Sender: FDA-Public Use
  Company Number: IT-MLMSERVICE-20221020-3875772-1

PATIENT
  Age: 56 Year
  Sex: Male

DRUGS (6)
  1. FUROSEMIDE [Suspect]
     Active Substance: FUROSEMIDE
     Indication: Diuretic therapy
     Dosage: 25 MILLIGRAM, TWO TIMES A DAY (HIGH DOSE)
     Route: 065
  2. FUROSEMIDE [Suspect]
     Active Substance: FUROSEMIDE
     Dosage: 50 MILLIGRAM, TWO TIMES A DAY
     Route: 065
  3. HYDROCHLOROTHIAZIDE [Suspect]
     Active Substance: HYDROCHLOROTHIAZIDE
     Indication: Diuretic therapy
     Dosage: 25 MILLIGRAM, ONCE A DAY (HIGH DOSE)
     Route: 065
  4. APIXABAN [Concomitant]
     Active Substance: APIXABAN
     Indication: Anticoagulant therapy
     Dosage: 2.5 MILLIGRAM, TWO TIMES A DAY
     Route: 048
  5. RAMIPRIL [Concomitant]
     Active Substance: RAMIPRIL
     Indication: Diuretic therapy
     Dosage: 5 MILLIGRAM, ONCE A DAY
     Route: 065
  6. BISOPROLOL [Concomitant]
     Active Substance: BISOPROLOL
     Indication: Diuretic therapy
     Dosage: 2.5 MILLIGRAM, ONCE A DAY
     Route: 065

REACTIONS (7)
  - Ventricular tachycardia [Unknown]
  - Device pacing issue [Recovered/Resolved]
  - Hypokalaemia [Unknown]
  - Ventricular fibrillation [Unknown]
  - Hypomagnesaemia [Unknown]
  - Electrocardiogram QT prolonged [Unknown]
  - Ventricular arrhythmia [Unknown]
